FAERS Safety Report 4603945-2 (Version None)
Quarter: 2005Q1

REPORT INFORMATION
  Report Type: 
  Country: None (occurrence: None)
  Receive Date: 20050310
  Receipt Date: 20050201
  Transmission Date: 20050727
  Serious: Yes (Hospitalization)
  Sender: FDA-Public Use
  Company Number: JP-GLAXOSMITHKLINE-B0369816A

PATIENT
  Age: 61 Year
  Sex: Female
  Weight: 57 kg

DRUGS (3)
  1. ZANTAC [Suspect]
     Indication: CHEMOTHERAPY
     Dosage: 50MG PER DAY
     Route: 042
     Dates: start: 20050113, end: 20050113
  2. DECADRON [Concomitant]
     Indication: CHEMOTHERAPY
     Dosage: 12MG TWICE PER DAY
     Route: 042
     Dates: start: 20050112, end: 20050113
  3. KYTRIL [Concomitant]
     Dosage: 3.36MG PER DAY
     Route: 042
     Dates: start: 20050113, end: 20050113

REACTIONS (3)
  - DYSPNOEA [None]
  - PULSE ABSENT [None]
  - SHOCK [None]
